FAERS Safety Report 13395884 (Version 2)
Quarter: 2017Q2

REPORT INFORMATION
  Report Type: Spontaneous
  Country: US (occurrence: US)
  Receive Date: 20170403
  Receipt Date: 20170404
  Transmission Date: 20170830
  Serious: No
  Sender: FDA-Public Use
  Company Number: US-BAYER-2017-063166

PATIENT

DRUGS (1)
  1. CLARITIN [Suspect]
     Active Substance: LORATADINE

REACTIONS (4)
  - Sneezing [Unknown]
  - Drug ineffective [Unknown]
  - Eye swelling [Unknown]
  - Ocular hyperaemia [Unknown]
